FAERS Safety Report 24338332 (Version 1)
Quarter: 2024Q3

REPORT INFORMATION
  Report Type: Spontaneous
  Country: TR (occurrence: TR)
  Receive Date: 20240919
  Receipt Date: 20240919
  Transmission Date: 20241016
  Serious: Yes (Hospitalization, Other)
  Sender: JUBILANT
  Company Number: TR-JUBILANT CADISTA PHARMACEUTICALS-2024TR001300

PATIENT
  Age: 6 Year
  Sex: Male

DRUGS (8)
  1. RISPERIDONE [Interacting]
     Active Substance: RISPERIDONE
     Indication: Attention deficit hyperactivity disorder
     Dosage: 0.25 MG, ONCE PER DAY
     Dates: start: 202112
  2. RISPERIDONE [Interacting]
     Active Substance: RISPERIDONE
     Dosage: 0.5 MG, ONCE PER DAY
     Dates: start: 202208
  3. METHYLPHENIDATE HYDROCHLORIDE [Interacting]
     Active Substance: METHYLPHENIDATE HYDROCHLORIDE
     Indication: Attention deficit hyperactivity disorder
     Dosage: 20 MG, ONCE PER DAY/ EXTENDED RELEASE
     Route: 065
     Dates: start: 202305, end: 202310
  4. METHYLPHENIDATE HYDROCHLORIDE [Interacting]
     Active Substance: METHYLPHENIDATE HYDROCHLORIDE
     Indication: Social (pragmatic) communication disorder
     Dosage: 10 MG, ONCE PER DAY/ EXTENDED RELEASE
     Route: 065
     Dates: start: 202209, end: 202305
  5. METHYLPHENIDATE HYDROCHLORIDE [Interacting]
     Active Substance: METHYLPHENIDATE HYDROCHLORIDE
     Indication: Intellectual disability
     Dosage: 10 MG, ONCE PER DAY, IF NECESSARY IN THE AFTERNOON/ SHORT-ACTING
     Route: 065
     Dates: start: 202305
  6. METHYLPHENIDATE HYDROCHLORIDE [Interacting]
     Active Substance: METHYLPHENIDATE HYDROCHLORIDE
     Indication: Autism spectrum disorder
     Dosage: 10 MG, ONCE PER DAY/ IMMEDIATE RELEASE
     Route: 065
     Dates: start: 202205, end: 202206
  7. METHYLPHENIDATE HYDROCHLORIDE [Interacting]
     Active Substance: METHYLPHENIDATE HYDROCHLORIDE
     Dosage: 20 MG, ONCE PER DAY/ IMMEDIATE RELEASE
     Route: 065
     Dates: start: 202206, end: 202209
  8. METHYLPHENIDATE HYDROCHLORIDE [Interacting]
     Active Substance: METHYLPHENIDATE HYDROCHLORIDE
     Dosage: 30 MG, ONCE PER DAY, INCREASED/ LONG-ACTING
     Route: 065
     Dates: start: 202310

REACTIONS (4)
  - Dystonia [Recovered/Resolved]
  - Withdrawal syndrome [Recovered/Resolved]
  - Drug interaction [Recovered/Resolved]
  - Product dose omission issue [Recovered/Resolved]

NARRATIVE: CASE EVENT DATE: 20230101
